FAERS Safety Report 7006642-1 (Version None)
Quarter: 2010Q3

REPORT INFORMATION
  Report Type: 
  Country: None (occurrence: None)
  Receive Date: 20100921
  Receipt Date: 20100921
  Transmission Date: 20110219
  Serious: No
  Sender: FDA-Public Use
  Company Number: None

PATIENT
  Age: 35 Year
  Sex: Female
  Weight: 50.8029 kg

DRUGS (2)
  1. THERAGESIC MAXIMUM STRENGTH MISSION PHARMACAL COMPANY [Suspect]
     Indication: BACK PAIN
     Dosage: LAYER ONCE TOP ONCE
     Route: 061
     Dates: start: 20100917, end: 20100918
  2. THERAGESIC MAXIMUM STRENGTH MISSION PHARMACAL COMPANY [Suspect]
     Indication: MUSCLE SPASMS
     Dosage: LAYER ONCE TOP ONCE
     Route: 061
     Dates: start: 20100917, end: 20100918

REACTIONS (3)
  - ERYTHEMA [None]
  - PAIN [None]
  - SKIN BURNING SENSATION [None]
